FAERS Safety Report 10008780 (Version 2)
Quarter: 2014Q1

REPORT INFORMATION
  Report Type: Spontaneous
  Country: US (occurrence: US)
  Receive Date: 20140312
  Receipt Date: 20140312
  Transmission Date: 20141002
  Serious: Yes (Other)
  Sender: FDA-Public Use
  Company Number: US-INCYTE CORPORATION-2012IN000466

PATIENT
  Age: 67 Year
  Sex: Female
  Weight: 62.59 kg

DRUGS (12)
  1. JAKAFI [Suspect]
     Indication: MYELOFIBROSIS
     Dosage: 5 MG, BID
     Route: 048
     Dates: start: 20120215, end: 20120316
  2. JAKAFI [Suspect]
     Dosage: 10 MG, BID
     Route: 048
     Dates: start: 20120317, end: 2012
  3. JAKAFI [Suspect]
     Dosage: 15 MG, BID
     Route: 048
     Dates: start: 2012
  4. DANAZOL [Concomitant]
     Dosage: 200 MG, BID
  5. ALKERAN [Concomitant]
     Dosage: 2 MG, QD
  6. ALLOPURINOL [Concomitant]
     Indication: GOUT
     Dosage: 300 MG, QD
  7. LASIX [Concomitant]
     Dosage: 20 MG, PRN
  8. DARVOCET [Concomitant]
     Indication: PAIN
     Dosage: UNK, PRN
  9. LEUKERAN [Concomitant]
  10. LEVAQUIN [Concomitant]
     Indication: PNEUMONIA
  11. INDOMETHACIN [Concomitant]
     Indication: GOUT
  12. COUMADIN [Concomitant]

REACTIONS (9)
  - Haemoglobin decreased [Not Recovered/Not Resolved]
  - Gastroenteritis viral [Recovered/Resolved]
  - Nausea [Recovered/Resolved]
  - Vomiting [Recovered/Resolved]
  - Weight decreased [Not Recovered/Not Resolved]
  - Gout [Unknown]
  - Mucosal inflammation [Unknown]
  - Oral pain [Unknown]
  - Oropharyngeal plaque [Unknown]
